FAERS Safety Report 4481976-3 (Version None)
Quarter: 2004Q4

REPORT INFORMATION
  Report Type: 
  Country: None (occurrence: None)
  Receive Date: 20041022
  Receipt Date: 20041001
  Transmission Date: 20050328
  Serious: Yes (Hospitalization)
  Sender: FDA-Public Use
  Company Number: US-ABBOTT-04P-163-0276039-00

PATIENT
  Sex: Male
  Weight: 68 kg

DRUGS (1)
  1. CALCIJEX INJECTION [Suspect]
     Indication: NEOPLASM

REACTIONS (1)
  - CELLULITIS [None]
